FAERS Safety Report 5775469-0 (Version None)
Quarter: 2008Q2

REPORT INFORMATION
  Report Type: 
  Country: None (occurrence: None)
  Receive Date: 20080612
  Receipt Date: 20080530
  Transmission Date: 20081010
  Serious: Yes (Other)
  Sender: FDA-Public Use
  Company Number: 2008S1009533

PATIENT
  Age: 61 Year
  Sex: Male

DRUGS (4)
  1. CLARITHROMYCIN [Suspect]
     Indication: LOWER RESPIRATORY TRACT INFECTION
     Dosage: 500 MG; TWICE A DAY, 500 MG; TWICE A DAY
     Dates: start: 20080424, end: 20080428
  2. CLARITHROMYCIN [Suspect]
     Indication: LOWER RESPIRATORY TRACT INFECTION
     Dosage: 500 MG; TWICE A DAY, 500 MG; TWICE A DAY
     Dates: start: 20080424, end: 20080428
  3. CO-CODAMOL (PANADEINE CO) [Concomitant]
  4. PREDNISOLONE [Concomitant]

REACTIONS (3)
  - ANXIETY [None]
  - CONFUSIONAL STATE [None]
  - PARANOIA [None]
